FAERS Safety Report 6156494-7 (Version None)
Quarter: 2009Q2

REPORT INFORMATION
  Report Type: 
  Country: None (occurrence: None)
  Receive Date: 20090416
  Receipt Date: 20070824
  Transmission Date: 20091009
  Serious: Yes (Hospitalization, Other)
  Sender: FDA-Public Use
  Company Number: US-ASTRAZENECA-2007UW12056

PATIENT
  Age: 576 Month
  Sex: Female
  Weight: 126.1 kg

DRUGS (14)
  1. SEROQUEL [Suspect]
     Indication: DEPRESSION
     Dosage: 100 MG - 300 MG
     Route: 048
     Dates: start: 20030409, end: 20060301
  2. OXAPROZIN [Concomitant]
  3. LEVOTHYROXINE SODIUM [Concomitant]
  4. LASIX [Concomitant]
  5. CLONAZEPAM [Concomitant]
  6. ENALAPRIL [Concomitant]
  7. AMITRIPTYLINE HCL [Concomitant]
  8. LAMICTAL [Concomitant]
  9. NEURONTIN [Concomitant]
  10. TRAZODONE HCL [Concomitant]
  11. AVANDIA [Concomitant]
  12. POTASSIUM CHLORIDE [Concomitant]
  13. FLUTICASONE [Concomitant]
  14. K-LYTE [Concomitant]

REACTIONS (18)
  - ARTHRALGIA [None]
  - BACK PAIN [None]
  - CHRONIC OBSTRUCTIVE PULMONARY DISEASE [None]
  - DEPRESSION [None]
  - HYPERLIPIDAEMIA [None]
  - HYPERTENSION [None]
  - HYPOTHYROIDISM [None]
  - MENTAL STATUS CHANGES [None]
  - MUSCLE SPASMS [None]
  - MUSCLE STRAIN [None]
  - NASAL CONGESTION [None]
  - PAIN [None]
  - PNEUMONIA [None]
  - SLEEP APNOEA SYNDROME [None]
  - SOMNOLENCE [None]
  - SUICIDAL IDEATION [None]
  - TYPE 2 DIABETES MELLITUS [None]
  - VENTRICULAR TACHYCARDIA [None]
